FAERS Safety Report 8005546-5 (Version None)
Quarter: 2011Q4

REPORT INFORMATION
  Report Type: 
  Country: None (occurrence: None)
  Receive Date: 20111223
  Receipt Date: 20111222
  Transmission Date: 20120403
  Serious: Yes (Other)
  Sender: FDA-Public Use
  Company Number: JP-JNJFOC-20111209753

PATIENT
  Age: 5 Decade
  Sex: Male

DRUGS (4)
  1. SLEEPING DRUG [Concomitant]
     Indication: SLEEP DISORDER THERAPY
     Route: 065
  2. UNSPECIFIED DEPRESSION MEDICATION [Concomitant]
     Indication: BIPOLAR I DISORDER
     Route: 065
  3. ANTIEPILEPTICS [Concomitant]
     Indication: EPILEPSY
     Route: 065
  4. NICORETTE [Suspect]
     Indication: SMOKING CESSATION THERAPY
     Dosage: 50 PIECES A DAY FOR MANY YEARS
     Route: 048

REACTIONS (3)
  - NICOTINE DEPENDENCE [None]
  - OVERDOSE [None]
  - INTENTIONAL DRUG MISUSE [None]
